FAERS Safety Report 7972345-X (Version None)
Quarter: 2011Q4

REPORT INFORMATION
  Report Type: 
  Country: None (occurrence: None)
  Receive Date: 20111213
  Receipt Date: 20111207
  Transmission Date: 20120403
  Serious: No
  Sender: FDA-Public Use
  Company Number: US-BIOGENIDEC-2011BI046297

PATIENT
  Age: 41 Year
  Sex: Female

DRUGS (1)
  1. TYSABRI [Suspect]
     Indication: MULTIPLE SCLEROSIS
     Route: 042
     Dates: start: 20111205

REACTIONS (7)
  - FEELING HOT [None]
  - MALAISE [None]
  - HEADACHE [None]
  - CHILLS [None]
  - FATIGUE [None]
  - NASOPHARYNGITIS [None]
  - PYREXIA [None]
